FAERS Safety Report 9179241 (Version 2)
Quarter: 2013Q2

REPORT INFORMATION
  Report Type: Report from Study
  Country: US (occurrence: US)
  Receive Date: 20130321
  Receipt Date: 20130404
  Transmission Date: 20140414
  Serious: Yes (Hospitalization, Other)
  Sender: FDA-Public Use
  Company Number: US-ABBOTT-13P-163-1062837-00

PATIENT
  Age: 20 Year
  Sex: Male
  Weight: 68.1 kg

DRUGS (2)
  1. HUMIRA [Suspect]
     Indication: CROHN^S DISEASE
     Dates: start: 2008, end: 2010
  2. HUMIRA [Suspect]
     Dates: start: 201202

REACTIONS (4)
  - Intestinal resection [Recovered/Resolved]
  - Nasopharyngitis [Recovered/Resolved]
  - Ear infection [Recovered/Resolved]
  - Crohn^s disease [Recovered/Resolved]
